FAERS Safety Report 5964979-9 (Version None)
Quarter: 2008Q4

REPORT INFORMATION
  Report Type: 
  Country: None (occurrence: None)
  Receive Date: 20081125
  Receipt Date: 20081113
  Transmission Date: 20090506
  Serious: Yes (Hospitalization)
  Sender: FDA-Public Use
  Company Number: PHHY2008CL28276

PATIENT
  Age: 74 Year
  Sex: Male

DRUGS (2)
  1. EXFORGE [Suspect]
     Indication: HYPERTENSION
     Dosage: 320/10 MG, DAILY
     Route: 048
     Dates: start: 20080901
  2. ATORVASTATIN CALCIUM [Concomitant]

REACTIONS (1)
  - EYE OPERATION [None]
